FAERS Safety Report 10292686 (Version 1)
Quarter: 2014Q3

REPORT INFORMATION
  Report Type: Spontaneous
  Country: US (occurrence: US)
  Receive Date: 20140710
  Receipt Date: 20140710
  Transmission Date: 20150326
  Serious: No
  Sender: FDA-Public Use
  Company Number: US-PURDUE-USA-2013-0108764

PATIENT
  Age: 49 Year
  Sex: Female

DRUGS (1)
  1. BUTRANS [Suspect]
     Active Substance: BUPRENORPHINE
     Indication: PAIN
     Dosage: 10 MCG/HR, WEEKLY
     Route: 062
     Dates: start: 2013

REACTIONS (8)
  - Application site pruritus [Not Recovered/Not Resolved]
  - Application site discharge [Unknown]
  - Drug administered at inappropriate site [Unknown]
  - Application site vesicles [Unknown]
  - Product quality issue [Unknown]
  - Application site rash [Not Recovered/Not Resolved]
  - Application site pain [Unknown]
  - Application site erosion [Unknown]

NARRATIVE: CASE EVENT DATE: 201310
